FAERS Safety Report 9407528 (Version 3)
Quarter: 2014Q2

REPORT INFORMATION
  Report Type: Spontaneous
  Country: RU (occurrence: RU)
  Receive Date: 20130718
  Receipt Date: 20140620
  Transmission Date: 20141212
  Serious: Yes (Death, Hospitalization, Other)
  Sender: FDA-Public Use
  Company Number: RU-BAYER-2013-083346

PATIENT
  Age: 33 Year
  Sex: Female

DRUGS (2)
  1. YAZ [Suspect]
     Indication: BREAST PAIN
     Dosage: UNK
     Route: 048
     Dates: start: 201303
  2. L-THYROXIN [Concomitant]
     Indication: AUTOIMMUNE THYROIDITIS
     Dosage: DAILY DOSE 100 ?G

REACTIONS (53)
  - Death [Fatal]
  - Disseminated intravascular coagulation [None]
  - Oral mucosal eruption [None]
  - Anaemia [None]
  - Thrombocytopenia [None]
  - Vaginal haemorrhage [None]
  - Epistaxis [None]
  - Rash [None]
  - Rash [None]
  - Thrombotic thrombocytopenic purpura [None]
  - Haemolysis [None]
  - Autoimmune thyroiditis [None]
  - Hypothyroidism [None]
  - Enterocolitis [None]
  - Retroperitoneal lymphadenopathy [None]
  - Pancreatitis chronic [None]
  - Bilirubin conjugated increased [None]
  - Hepatomegaly [None]
  - Lacunar infarction [None]
  - Amnesia [None]
  - Meningeal disorder [None]
  - Speech disorder [None]
  - Loss of consciousness [None]
  - Hypoaesthesia [None]
  - Brain injury [None]
  - Headache [None]
  - Loss of consciousness [None]
  - Sopor [None]
  - Pyrexia [None]
  - Asthenia [None]
  - Affect lability [None]
  - Tearfulness [None]
  - Disturbance in attention [None]
  - Cerebral arteriosclerosis [None]
  - Cerebral cyst [None]
  - Nephrolithiasis [None]
  - Subarachnoid haemorrhage [None]
  - Intraventricular haemorrhage [None]
  - Brain oedema [None]
  - Sinusitis [None]
  - Otosalpingitis [None]
  - Mastoiditis [None]
  - Muscle rigidity [None]
  - Gastrooesophageal reflux disease [None]
  - Gastritis [None]
  - Gastrooesophageal sphincter insufficiency [None]
  - Toxicologic test abnormal [None]
  - Tachycardia [None]
  - Pericarditis [None]
  - Pelvic fluid collection [None]
  - Lung infiltration [None]
  - General physical health deterioration [None]
  - Off label use [None]
